FAERS Safety Report 8113991-2 (Version None)
Quarter: 2012Q1

REPORT INFORMATION
  Report Type: 
  Country: None (occurrence: None)
  Receive Date: 20120203
  Receipt Date: 20120127
  Transmission Date: 20120608
  Serious: Yes (Hospitalization)
  Sender: FDA-Public Use
  Company Number: JP-MERCK-1201USA00106

PATIENT
  Age: 70 Year
  Sex: Male

DRUGS (10)
  1. MUCODYNE [Suspect]
     Route: 048
     Dates: end: 20111221
  2. JANUVIA [Suspect]
     Indication: TYPE 2 DIABETES MELLITUS
     Route: 048
     Dates: start: 20110302, end: 20111221
  3. SPIRIVA [Concomitant]
     Route: 065
     Dates: end: 20111220
  4. CISPLATIN [Concomitant]
     Route: 065
     Dates: start: 20110401, end: 20110701
  5. GRAMICIDIN S HYDROCHLORIDE AND NEOMYCIN SULFATE [Concomitant]
     Route: 065
  6. ETOPOSIDE [Concomitant]
     Route: 065
     Dates: start: 20110401, end: 20110701
  7. LANSOPRAZOLE [Suspect]
     Route: 048
     Dates: end: 20111220
  8. FLUVASTATIN [Concomitant]
     Route: 065
  9. MAGNESIUM OXIDE [Concomitant]
     Route: 065
     Dates: end: 20111221
  10. LOXONIN [Concomitant]
     Route: 065

REACTIONS (1)
  - INTERSTITIAL LUNG DISEASE [None]
